FAERS Safety Report 15456309 (Version 1)
Quarter: 2018Q3

REPORT INFORMATION
  Report Type: Spontaneous
  Country: US (occurrence: US)
  Receive Date: 20180928
  Receipt Date: 20180928
  Transmission Date: 20181010
  Serious: Yes (Other)
  Sender: FDA-Public Use
  Company Number: None

PATIENT
  Age: 39 Year
  Sex: Female

DRUGS (1)
  1. CLONAZEPAM, 0.5 MG [Suspect]
     Active Substance: CLONAZEPAM
     Indication: ANXIETY
     Route: 048
     Dates: start: 20180801, end: 20180901

REACTIONS (3)
  - Drug level decreased [None]
  - Laboratory test abnormal [None]
  - Emotional distress [None]

NARRATIVE: CASE EVENT DATE: 20180927
